FAERS Safety Report 5896330-7 (Version None)
Quarter: 2008Q3

REPORT INFORMATION
  Report Type: 
  Country: None (occurrence: None)
  Receive Date: 20080924
  Receipt Date: 20070828
  Transmission Date: 20090109
  Serious: Yes (Other)
  Sender: FDA-Public Use
  Company Number: US-ASTRAZENECA-2007UW20559

PATIENT
  Age: 32 Year
  Sex: Male

DRUGS (4)
  1. SEROQUEL [Suspect]
     Dosage: 400MG-800MG
     Route: 048
  2. DEPAKOTE [Concomitant]
     Indication: CONVULSION PROPHYLAXIS
  3. REMERON [Concomitant]
  4. TRAZIDONE [Concomitant]

REACTIONS (1)
  - BLOOD GLUCOSE INCREASED [None]
